FAERS Safety Report 6968821-9 (Version None)
Quarter: 2010Q3

REPORT INFORMATION
  Report Type: 
  Country: None (occurrence: None)
  Receive Date: 20100902
  Receipt Date: 20100624
  Transmission Date: 20110219
  Serious: Yes (Disabling)
  Sender: FDA-Public Use
  Company Number: APP200900574

PATIENT
  Age: 47 Year
  Sex: Male
  Weight: 113.8529 kg

DRUGS (3)
  1. SENSORCAINE [Suspect]
     Indication: MUSCULOSKELETAL PAIN
     Dosage: 275 ML, INTRA-ARTICULAR
     Route: 014
     Dates: start: 20060817
  2. PAIN PUMP [Suspect]
     Indication: MUSCULOSKELETAL PAIN
     Dates: start: 20060817
  3. ANCEF [Concomitant]

REACTIONS (3)
  - JOINT INJURY [None]
  - JOINT RANGE OF MOTION DECREASED [None]
  - MUSCULOSKELETAL PAIN [None]
